FAERS Safety Report 6295155-0 (Version None)
Quarter: 2009Q3

REPORT INFORMATION
  Report Type: 
  Country: None (occurrence: None)
  Receive Date: 20090803
  Receipt Date: 20090723
  Transmission Date: 20100115
  Serious: Yes (Other)
  Sender: FDA-Public Use
  Company Number: US-PFIZER INC-2009248273

PATIENT
  Sex: Male
  Weight: 63.492 kg

DRUGS (4)
  1. GEODON [Suspect]
     Indication: SCHIZOPHRENIA, PARANOID TYPE
     Dosage: 160 MG, 2X/DAY
     Route: 048
     Dates: start: 20040901
  2. CLONIDINE [Concomitant]
     Dosage: 0.3 MG, 1X/DAY
     Route: 048
  3. TRAZODONE [Concomitant]
     Dosage: 200 MG, 1X/DAY
     Route: 048
  4. REMERON [Concomitant]
     Dosage: 15 MG, 1X/DAY
     Route: 048

REACTIONS (3)
  - DIABETES MELLITUS [None]
  - OPEN ANGLE GLAUCOMA [None]
  - WEIGHT INCREASED [None]
